FAERS Safety Report 10572488 (Version 1)
Quarter: 2014Q4

REPORT INFORMATION
  Report Type: Report from Study
  Country: US (occurrence: US)
  Receive Date: 20141110
  Receipt Date: 20141110
  Transmission Date: 20150529
  Serious: Yes (Other)
  Sender: FDA-Public Use
  Company Number: US-ROCHE-1446964

PATIENT
  Age: 55 Year
  Sex: Female

DRUGS (13)
  1. LUCENTIS [Suspect]
     Active Substance: RANIBIZUMAB
     Indication: DIABETIC EYE DISEASE
  2. TETRAVISC [Concomitant]
     Active Substance: TETRACAINE HYDROCHLORIDE
     Dosage: X3, 5 MINUTES APART
     Route: 061
  3. AVASTIN [Suspect]
     Active Substance: BEVACIZUMAB
     Indication: MACULAR OEDEMA
  4. AVASTIN [Suspect]
     Active Substance: BEVACIZUMAB
     Indication: DIABETIC EYE DISEASE
  5. MYDRIACYL [Concomitant]
     Active Substance: TROPICAMIDE
     Route: 065
  6. AVASTIN [Suspect]
     Active Substance: BEVACIZUMAB
     Indication: DIABETIC RETINAL OEDEMA
     Route: 065
  7. PHENYLEPHRINE [Concomitant]
     Active Substance: PHENYLEPHRINE\PHENYLEPHRINE HYDROCHLORIDE
     Route: 065
  8. LUCENTIS [Suspect]
     Active Substance: RANIBIZUMAB
     Indication: MACULAR OEDEMA
  9. EYLEA [Concomitant]
     Active Substance: AFLIBERCEPT
     Route: 050
  10. GLIBENCLAMIDE [Concomitant]
     Active Substance: GLYBURIDE
     Route: 065
  11. BETADINE [Concomitant]
     Active Substance: POVIDONE-IODINE
  12. LUCENTIS [Suspect]
     Active Substance: RANIBIZUMAB
     Indication: DIABETIC RETINAL OEDEMA
     Route: 050
  13. METFORMIN HYDROCHLORIDE. [Concomitant]
     Active Substance: METFORMIN HYDROCHLORIDE
     Route: 065

REACTIONS (14)
  - Visual acuity reduced transiently [Unknown]
  - Metamorphopsia [Unknown]
  - Macular oedema [Unknown]
  - Crying [Unknown]
  - Visual impairment [Unknown]
  - Ophthalmological examination abnormal [Unknown]
  - Cataract cortical [Unknown]
  - Cataract [Unknown]
  - Eye pruritus [Unknown]
  - Visual acuity reduced [Unknown]
  - Blood glucose increased [Unknown]
  - Product use issue [Unknown]
  - Cataract nuclear [Unknown]
  - Eye irritation [Unknown]

NARRATIVE: CASE EVENT DATE: 20120105
